FAERS Safety Report 12675693 (Version 2)
Quarter: 2016Q4

REPORT INFORMATION
  Report Type: Spontaneous
  Country: US (occurrence: US)
  Receive Date: 20160823
  Receipt Date: 20161007
  Transmission Date: 20170207
  Serious: No
  Sender: FDA-Public Use
  Company Number: US-JAZZ-2016-US-006616

PATIENT
  Age: 41 Year
  Sex: Female
  Weight: 76.19 kg

DRUGS (19)
  1. ALLEGRA ALLERGY [Concomitant]
     Active Substance: FEXOFENADINE HYDROCHLORIDE
  2. LEVALBUTEROL. [Concomitant]
     Active Substance: LEVALBUTEROL
  3. PEPTO-BISMOL [Concomitant]
     Active Substance: BISMUTH SUBSALICYLATE
  4. XYREM [Suspect]
     Active Substance: SODIUM OXYBATE
     Indication: HYPERSOMNIA
     Dosage: 3 G, BID
     Route: 048
     Dates: start: 201511, end: 201512
  5. FLUTICASONE [Concomitant]
     Active Substance: FLUTICASONE\FLUTICASONE PROPIONATE
     Indication: HYPERSENSITIVITY
  6. MONTELUKAST [Concomitant]
     Active Substance: MONTELUKAST SODIUM
  7. MODAFINIL. [Concomitant]
     Active Substance: MODAFINIL
  8. ALBUTEROL. [Concomitant]
     Active Substance: ALBUTEROL
  9. TYLENOL [Concomitant]
     Active Substance: ACETAMINOPHEN
  10. ASTELIN [Concomitant]
     Active Substance: AZELASTINE HYDROCHLORIDE
  11. XOPENEX HFA [Concomitant]
     Active Substance: LEVALBUTEROL TARTRATE
  12. XYREM [Suspect]
     Active Substance: SODIUM OXYBATE
     Dosage: 3.75 G, BID
     Route: 048
     Dates: start: 201512
  13. ALKA-SELTZER PLUS NOS [Concomitant]
     Active Substance: ACETAMINOPHEN\ASPIRIN\CHLORPHENIRAMINE MALEATE\DEXTROMETHORPHAN HYDROBROMIDE\DIPHENHYDRAMINE HYDROCHLORIDE\DOXYLAMINE SUCCINATE\PHENYLEPHRINE BITARTRATE\PHENYLEPHRINE HYDROCHLORIDE
  14. SYMBICORT [Concomitant]
     Active Substance: BUDESONIDE\FORMOTEROL FUMARATE DIHYDRATE
     Indication: ASTHMA
  15. ACCOLATE [Concomitant]
     Active Substance: ZAFIRLUKAST
  16. CONTRAVE [Concomitant]
     Active Substance: BUPROPION HYDROCHLORIDE\NALTREXONE HYDROCHLORIDE
  17. NUVIGIL [Concomitant]
     Active Substance: ARMODAFINIL
     Indication: NARCOLEPSY
  18. OMEPRAZOLE. [Concomitant]
     Active Substance: OMEPRAZOLE
  19. METHYLPHENIDATE. [Concomitant]
     Active Substance: METHYLPHENIDATE

REACTIONS (8)
  - Arthralgia [Recovered/Resolved]
  - Paraesthesia [Recovered/Resolved]
  - Wrong technique in product usage process [Unknown]
  - Hunger [Recovered/Resolved]
  - Peripheral swelling [Recovered/Resolved]
  - Pain in extremity [Recovered/Resolved]
  - Gait disturbance [Recovered/Resolved]
  - Joint swelling [Recovered/Resolved]

NARRATIVE: CASE EVENT DATE: 2015
